FAERS Safety Report 14454275 (Version 1)
Quarter: 2018Q1

REPORT INFORMATION
  Report Type: Spontaneous
  Country: US (occurrence: US)
  Receive Date: 20180129
  Receipt Date: 20180129
  Transmission Date: 20180509
  Serious: No
  Sender: FDA-Public Use
  Company Number: US-PERRIGO-17US026859

PATIENT
  Sex: Female

DRUGS (1)
  1. TRETINOIN. [Suspect]
     Active Substance: TRETINOIN
     Indication: ROUTINE HEALTH MAINTENANCE
     Dosage: UNKNOWN, UNKNOWN
     Route: 061
     Dates: start: 201709

REACTIONS (2)
  - Application site dryness [Unknown]
  - Off label use [Unknown]

NARRATIVE: CASE EVENT DATE: 201709
